FAERS Safety Report 8964208 (Version 1)
Quarter: 2012Q4

REPORT INFORMATION
  Report Type: 
  Country: US (occurrence: US)
  Receive Date: 20121213
  Receipt Date: 20121213
  Transmission Date: 20130627
  Serious: Yes (Other)
  Sender: FDA-Public Use
  Company Number: US-ABBOTT-12P-163-1017111-00

PATIENT
  Sex: Female

DRUGS (3)
  1. HUMIRA [Suspect]
     Indication: PSORIATIC ARTHROPATHY
  2. HUMIRA [Suspect]
     Indication: PSORIASIS
  3. FUDEX [Suspect]
     Indication: CHEMOTHERAPY

REACTIONS (5)
  - Unevaluable event [Unknown]
  - Anxiety [Unknown]
  - Malaise [Unknown]
  - Toxicity to various agents [Unknown]
  - Skin cancer [Unknown]
